FAERS Safety Report 19960099 (Version 1)
Quarter: 2021Q4

REPORT INFORMATION
  Report Type: Spontaneous
  Country: US (occurrence: US)
  Receive Date: 20211013
  Receipt Date: 20211013
  Transmission Date: 20220303
  Serious: Yes (Hospitalization)
  Sender: FDA-Public Use
  Company Number: None

PATIENT
  Age: 77 Year
  Sex: Male

DRUGS (1)
  1. HUMATROPE [Suspect]
     Active Substance: SOMATROPIN
     Indication: Hypopituitarism
     Route: 058
     Dates: start: 201908

REACTIONS (2)
  - COVID-19 [None]
  - Therapy interrupted [None]

NARRATIVE: CASE EVENT DATE: 20210909
